FAERS Safety Report 8171188-4 (Version None)
Quarter: 2012Q1

REPORT INFORMATION
  Report Type: 
  Country: None (occurrence: None)
  Receive Date: 20120228
  Receipt Date: 20111214
  Transmission Date: 20120608
  Serious: No
  Sender: FDA-Public Use
  Company Number: US-BRISTOL-MYERS SQUIBB COMPANY-16292997

PATIENT
  Sex: Male

DRUGS (1)
  1. ONGLYZA [Suspect]
     Dosage: STARTED TWO WEEKS BACK.

REACTIONS (1)
  - PRURITUS [None]
